FAERS Safety Report 5706044-1 (Version None)
Quarter: 2008Q2

REPORT INFORMATION
  Report Type: 
  Country: None (occurrence: None)
  Receive Date: 20080415
  Receipt Date: 20080407
  Transmission Date: 20081010
  Serious: Yes (Hospitalization, Other)
  Sender: FDA-Public Use
  Company Number: ZA-BRISTOL-MYERS SQUIBB COMPANY-14148324

PATIENT
  Age: 37 Year
  Sex: Female

DRUGS (5)
  1. EFAVIRENZ [Suspect]
     Indication: HIV INFECTION
     Route: 048
     Dates: start: 20051122, end: 20071126
  2. ASCORBIC ACID [Concomitant]
  3. LAMIVUDINE + ZIDOVUDINE [Concomitant]
     Dates: start: 20051122
  4. SULFAMETHOXAZOLE AND TRIMETHOPRIM [Concomitant]
  5. VITAMIN B [Concomitant]

REACTIONS (3)
  - FOETAL HEART RATE ABNORMAL [None]
  - PREGNANCY [None]
  - STILLBIRTH [None]
